FAERS Safety Report 6620252-7 (Version None)
Quarter: 2010Q1

REPORT INFORMATION
  Report Type: 
  Country: None (occurrence: None)
  Receive Date: 20100309
  Receipt Date: 20070402
  Transmission Date: 20100710
  Serious: Yes (Hospitalization)
  Sender: FDA-Public Use
  Company Number: HQWYE428103APR07

PATIENT

DRUGS (1)
  1. NEUMEGA [Suspect]
     Dosage: DOSE, FREQUENCY AND DATES OF THERAPY NOT PROVIDED
     Route: 065

REACTIONS (1)
  - DIZZINESS [None]
